FAERS Safety Report 4313463-7 (Version None)
Quarter: 2004Q1

REPORT INFORMATION
  Report Type: 
  Country: None (occurrence: None)
  Receive Date: 20040308
  Receipt Date: 20030407
  Transmission Date: 20041129
  Serious: Yes (Hospitalization, Disabling, Other)
  Sender: FDA-Public Use
  Company Number: WAES 0304USA00822

PATIENT
  Age: 61 Year
  Sex: Female
  Weight: 84 kg

DRUGS (15)
  1. DARVOCET-N 100 [Concomitant]
  2. AMITRIPTYLINE HYDROCHLORIDE [Concomitant]
  3. ASPIRIN [Concomitant]
  4. PEPCID [Concomitant]
  5. LASIX [Concomitant]
     Dates: start: 19600101
  6. HYDRODIURIL [Concomitant]
     Dates: start: 19600101
  7. INSULIN, BIPHASIC ISOPHANE [INJECTION] [Concomitant]
  8. SYNTHROID [Concomitant]
  9. ALUPENT [Concomitant]
  10. ZAROXOLYN [Concomitant]
  11. NIACIN [Concomitant]
  12. POTASSIUM (UNSPECIFIED) [Concomitant]
  13. VIOXX [Suspect]
     Indication: BACK PAIN
     Route: 048
     Dates: end: 20000608
  14. DYRENIUM [Concomitant]
  15. VITAMINS (UNSPECIFIED) [Concomitant]

REACTIONS (61)
  - ACUTE MYOCARDIAL INFARCTION [None]
  - ANGINA PECTORIS [None]
  - ANGINA UNSTABLE [None]
  - ANTINUCLEAR ANTIBODY POSITIVE [None]
  - AORTIC VALVE INCOMPETENCE [None]
  - BACTERIURIA [None]
  - CARDIAC DISORDER [None]
  - CARDIAC FAILURE CONGESTIVE [None]
  - CAROTID ARTERY DISEASE [None]
  - CATARACT [None]
  - CEREBRAL ISCHAEMIA [None]
  - CORONARY ARTERY DISEASE [None]
  - CORONARY ARTERY RESTENOSIS [None]
  - DEPRESSION [None]
  - DIABETIC NEPHROPATHY [None]
  - DIABETIC NEUROPATHY [None]
  - DIABETIC RETINAL OEDEMA [None]
  - DIABETIC RETINOPATHY [None]
  - DRUG TOLERANCE DECREASED [None]
  - ELECTROCARDIOGRAM T WAVE INVERSION [None]
  - ESCHERICHIA URINARY TRACT INFECTION [None]
  - FALL [None]
  - FATIGUE [None]
  - FEELING ABNORMAL [None]
  - GASTROOESOPHAGEAL REFLUX DISEASE [None]
  - HEADACHE [None]
  - HYPERHIDROSIS [None]
  - HYPERLIPIDAEMIA [None]
  - HYPERTENSION [None]
  - HYPOAESTHESIA [None]
  - HYPOGLYCAEMIA [None]
  - INJURY [None]
  - JOINT SWELLING [None]
  - LACUNAR INFARCTION [None]
  - LIPIDS INCREASED [None]
  - LUNG NEOPLASM [None]
  - MACULOPATHY [None]
  - METABOLIC ALKALOSIS [None]
  - MITRAL VALVE INCOMPETENCE [None]
  - MYOCARDIAL INFARCTION [None]
  - NAUSEA [None]
  - NOCTURIA [None]
  - OEDEMA PERIPHERAL [None]
  - PAIN [None]
  - PLEURAL EFFUSION [None]
  - PULMONARY HYPERTENSION [None]
  - PULMONARY OEDEMA [None]
  - RADIUS FRACTURE [None]
  - RENAL FAILURE CHRONIC [None]
  - SCOLIOSIS [None]
  - SEASONAL ALLERGY [None]
  - SKIN LESION [None]
  - SKULL FRACTURE [None]
  - SPINAL COLUMN STENOSIS [None]
  - STASIS DERMATITIS [None]
  - TREMOR [None]
  - TRICUSPID VALVE INCOMPETENCE [None]
  - VENTRICULAR HYPERTROPHY [None]
  - VOMITING [None]
  - WEIGHT INCREASED [None]
  - WRIST FRACTURE [None]
